FAERS Safety Report 21515198 (Version 4)
Quarter: 2022Q4

REPORT INFORMATION
  Report Type: Spontaneous
  Country: US (occurrence: US)
  Receive Date: 20221027
  Receipt Date: 20221221
  Transmission Date: 20230112
  Serious: No
  Sender: FDA-Public Use
  Company Number: US-PFIZER INC-202201257918

PATIENT
  Age: 59 Year
  Sex: Female
  Weight: 80.74 kg

DRUGS (1)
  1. PAXLOVID [Suspect]
     Active Substance: NIRMATRELVIR\RITONAVIR
     Indication: COVID-19 treatment
     Dosage: UNK (300MG, 100MG DOSE PACK;TAKE ALL 3 TABLETS AT SAME TIME; MORNING DOSE, EVENING DOSE)
     Dates: start: 20221025

REACTIONS (5)
  - Prescription drug used without a prescription [Unknown]
  - Dysgeusia [Not Recovered/Not Resolved]
  - Diarrhoea [Unknown]
  - Flatulence [Unknown]
  - Insomnia [Unknown]

NARRATIVE: CASE EVENT DATE: 20221025
